FAERS Safety Report 14899458 (Version 1)
Quarter: 2018Q2

REPORT INFORMATION
  Report Type: Spontaneous
  Country: FR (occurrence: FR)
  Receive Date: 20180516
  Receipt Date: 20180516
  Transmission Date: 20180711
  Serious: Yes (Other)
  Sender: FDA-Public Use
  Company Number: FR-ACCORD-062726

PATIENT
  Age: 17 Year
  Sex: Female

DRUGS (1)
  1. ONDANSETRON [Suspect]
     Active Substance: ONDANSETRON
     Indication: VOMITING
     Route: 042

REACTIONS (5)
  - Urticaria [Recovering/Resolving]
  - Anaphylactic reaction [Unknown]
  - Erythema [Unknown]
  - Type I hypersensitivity [Unknown]
  - Papule [Unknown]
